FAERS Safety Report 6666097-3 (Version None)
Quarter: 2010Q1

REPORT INFORMATION
  Report Type: 
  Country: None (occurrence: None)
  Receive Date: 20100331
  Receipt Date: 20100326
  Transmission Date: 20100710
  Serious: Yes (Other)
  Sender: FDA-Public Use
  Company Number: RB-05618-2010

PATIENT
  Age: 77 Year
  Sex: Male

DRUGS (2)
  1. DELSYM [Suspect]
     Dosage: TOOK PRODUCT YESTERDAY EVENING. HE TOOK IT AGAIN THIS MORNING AROUND 6 AM. ORAL
     Route: 048
     Dates: start: 20100325
  2. SELEGILINE HCL [Concomitant]

REACTIONS (6)
  - DIZZINESS [None]
  - DRUG INTERACTION [None]
  - FEELING HOT [None]
  - HYPERHIDROSIS [None]
  - REFUSAL OF TREATMENT BY PATIENT [None]
  - SYNCOPE [None]
